FAERS Safety Report 16145736 (Version 1)
Quarter: 2019Q2

REPORT INFORMATION
  Report Type: Spontaneous
  Country: US (occurrence: US)
  Receive Date: 20190401
  Receipt Date: 20190401
  Transmission Date: 20190711
  Serious: Yes (Other)
  Sender: FDA-Public Use
  Company Number: None

PATIENT
  Age: 60 Year
  Sex: Female
  Weight: 74.25 kg

DRUGS (7)
  1. COLESTIPOL [Concomitant]
     Active Substance: COLESTIPOL
  2. VITAMIN D [Concomitant]
     Active Substance: VITAMIN D NOS
  3. GARLIC. [Concomitant]
     Active Substance: GARLIC
  4. FISH OIL [Concomitant]
     Active Substance: FISH OIL
  5. MULTIPLE VITAMIN [Concomitant]
     Active Substance: VITAMINS
  6. VITAMIN B12 [Concomitant]
     Active Substance: CYANOCOBALAMIN
  7. TYLENOL ARTHRITIS PAIN [Suspect]
     Active Substance: ACETAMINOPHEN
     Indication: BACK PAIN
     Dosage: ?          QUANTITY:1 TABLET(S);?
     Route: 048
     Dates: start: 20190323, end: 20190325

REACTIONS (2)
  - Abdominal pain upper [None]
  - Abdominal distension [None]

NARRATIVE: CASE EVENT DATE: 20190323
